FAERS Safety Report 11783598 (Version 1)
Quarter: 2015Q4

REPORT INFORMATION
  Report Type: Spontaneous
  Country: US (occurrence: US)
  Receive Date: 20151127
  Receipt Date: 20151127
  Transmission Date: 20160305
  Serious: Yes (Other)
  Sender: FDA-Public Use
  Company Number: US-BRISTOL-MYERS SQUIBB COMPANY-BMS-2015-083263

PATIENT
  Age: 78 Year
  Sex: Female

DRUGS (1)
  1. ELIQUIS [Suspect]
     Active Substance: APIXABAN
     Dosage: 5 MG, QD
     Dates: start: 201501

REACTIONS (6)
  - Joint swelling [Unknown]
  - Lower limb fracture [Unknown]
  - Gait disturbance [Unknown]
  - Arthralgia [Unknown]
  - Fall [Unknown]
  - Asthenia [Unknown]
